FAERS Safety Report 7656221-8 (Version None)
Quarter: 2011Q3

REPORT INFORMATION
  Report Type: 
  Country: None (occurrence: None)
  Receive Date: 20110804
  Receipt Date: 20110728
  Transmission Date: 20111222
  Serious: Yes (Hospitalization)
  Sender: FDA-Public Use
  Company Number: FR-B.I. PHARMACEUTICALS,INC./RIDGEFIELD-2011-DE-04416BY

PATIENT
  Sex: Male

DRUGS (9)
  1. AMLODIPINE BESYLATE [Concomitant]
     Dates: start: 19970101, end: 20110608
  2. LASIX [Concomitant]
     Dates: start: 20070101
  3. TELMISARTAN [Suspect]
     Dosage: 1 ANZ
     Route: 048
     Dates: start: 20090101, end: 20110608
  4. TRAMADOL HCL [Concomitant]
  5. PREVISCAN [Concomitant]
  6. MEDIATENSYL [Concomitant]
     Dates: start: 19990101, end: 20110608
  7. DETENSIL [Concomitant]
     Dates: start: 20070101
  8. XANAX [Concomitant]
  9. CORVASAL [Concomitant]
     Dates: start: 20070101, end: 20110608

REACTIONS (5)
  - HYPERAESTHESIA [None]
  - ARTHRALGIA [None]
  - RHABDOMYOLYSIS [None]
  - RENAL FAILURE ACUTE [None]
  - MYALGIA [None]
